FAERS Safety Report 16289395 (Version 4)
Quarter: 2019Q3

REPORT INFORMATION
  Report Type: Spontaneous
  Country: US (occurrence: US)
  Receive Date: 20190509
  Receipt Date: 20190704
  Transmission Date: 20191004
  Serious: No
  Sender: FDA-Public Use
  Company Number: US-GW PHARMA-201901USGW0092

PATIENT

DRUGS (1)
  1. EPIDIOLEX [Suspect]
     Active Substance: CANNABIDIOL
     Indication: LENNOX-GASTAUT SYNDROME
     Dosage: 4.15MG/KG, 60 MILLIGRAM, BID
     Route: 048

REACTIONS (4)
  - Product dose omission [Unknown]
  - Thirst [Unknown]
  - Product leakage [Unknown]
  - Increased appetite [Unknown]

NARRATIVE: CASE EVENT DATE: 20190116
